FAERS Safety Report 8741995 (Version 2)
Quarter: 2013Q4

REPORT INFORMATION
  Report Type: Report from Study
  Country: US (occurrence: US)
  Receive Date: 20120824
  Receipt Date: 20131031
  Transmission Date: 20140711
  Serious: Yes (Other)
  Sender: FDA-Public Use
  Company Number: US-009507513-1208USA008139

PATIENT
  Age: 79 Year
  Sex: Male

DRUGS (5)
  1. TAFLUPROST [Suspect]
     Indication: OPEN ANGLE GLAUCOMA
     Dosage: 1 GTT, QD
     Route: 047
     Dates: start: 20120801, end: 20120802
  2. STUDY DRUG (UNSPECIFIED) [Suspect]
     Indication: OPEN ANGLE GLAUCOMA
     Dosage: 2 GTT, QD
     Route: 047
     Dates: start: 20120801, end: 20120802
  3. LOVASTATIN [Concomitant]
     Indication: HYPERCHOLESTEROLAEMIA
     Dosage: UNK
     Dates: start: 199808
  4. OLMESARTAN MEDOXOMIL [Concomitant]
     Indication: HYPERTENSION
     Dosage: UNK
     Dates: start: 20091113
  5. BRINZOLAMIDE [Concomitant]
     Indication: OPEN ANGLE GLAUCOMA
     Dosage: UNK
     Dates: start: 20120502, end: 20120726

REACTIONS (1)
  - Anterior chamber flare [Recovered/Resolved]
